FAERS Safety Report 8483153-8 (Version None)
Quarter: 2012Q3

REPORT INFORMATION
  Report Type: 
  Country: None (occurrence: None)
  Receive Date: 20120702
  Receipt Date: 20120619
  Transmission Date: 20120928
  Serious: No
  Sender: FDA-Public Use
  Company Number: US-ASTRAZENECA-2012SE41354

PATIENT
  Age: 64 Year
  Sex: Female
  Weight: 125.2 kg

DRUGS (18)
  1. SYMBICORT [Suspect]
     Indication: PULMONARY HYPERTENSION
     Dosage: 80/4.5 2 PUFFS BID
     Route: 055
     Dates: start: 20120301
  2. OXYBUTEN [Concomitant]
  3. LASIX [Concomitant]
  4. ALLEGRA [Concomitant]
  5. ULTRASET [Concomitant]
  6. OXYCODONE HCL [Concomitant]
  7. TRACLEER [Concomitant]
  8. ZOLOFT [Concomitant]
  9. REMOGULIN IV [Concomitant]
  10. FENOFIBRATE [Concomitant]
  11. LIPITOR [Concomitant]
  12. SPIRIVA [Concomitant]
  13. CELEBREX [Concomitant]
  14. LAVOXYL [Concomitant]
  15. NEURONTIN [Concomitant]
  16. VITAMIN D [Concomitant]
  17. OSTEO BI-FLEX [Concomitant]
  18. CHLORAZAPATE [Concomitant]

REACTIONS (3)
  - OFF LABEL USE [None]
  - TONGUE HAEMORRHAGE [None]
  - GLOSSODYNIA [None]
